FAERS Safety Report 23091369 (Version 1)
Quarter: 2023Q4

REPORT INFORMATION
  Report Type: Report from Study
  Country: DE (occurrence: DE)
  Receive Date: 20231020
  Receipt Date: 20231020
  Transmission Date: 20240109
  Serious: Yes (Hospitalization)
  Sender: FDA-Public Use
  Company Number: DE-ABBVIE-18K-062-2402033-00

PATIENT
  Age: 52 Year
  Sex: Female

DRUGS (7)
  1. METHOTREXATE SODIUM [Suspect]
     Active Substance: METHOTREXATE SODIUM
     Dosage: START DATE TEXT: BETWEEN 13AUG2021 AND 13JUL2022
     Route: 065
  2. METHOTREXATE SODIUM [Suspect]
     Active Substance: METHOTREXATE SODIUM
     Dosage: START DATE TEXT: BETWEEN 23JUN2016 AND 16SEP2016, STOP DATE TEXT: BETWEEN 28NOV2017 AND 25JUN2018
     Route: 065
  3. METHOTREXATE SODIUM [Suspect]
     Active Substance: METHOTREXATE SODIUM
     Dosage: START DATE TEXT: BETWEEN 28NOV2017 AND 25JUN2018, STOP DATE TEXT: BETWEEN13AUG2021 AND 13JUL2022
     Route: 065
  4. HUMIRA [Suspect]
     Active Substance: ADALIMUMAB
     Indication: Rheumatoid arthritis
     Dosage: FREQ:2 WK;
     Route: 058
     Dates: start: 201606, end: 201812
  5. SULFASALAZINE DELAYED-RELEASE [Concomitant]
     Active Substance: SULFASALAZINE
     Dosage: 500 DF
     Route: 065
  6. HYDROXYCHLOROQUINE [Concomitant]
     Active Substance: HYDROXYCHLOROQUINE
     Dosage: START DATE TEXT: BEFORE 23JUN2016STOP DATE TEXT: BETWEEN16SEP2016 AND 17JAN2017
     Route: 065
  7. SULFASALAZINE [Concomitant]
     Active Substance: SULFASALAZINE
     Dosage: START DATE TEXT: BEFORE 23JUN2016STOP DATE TEXT: BETWEEN16SEP2016 AND 17JAN2017
     Route: 065

REACTIONS (10)
  - Escherichia urinary tract infection [Unknown]
  - Spinal osteoarthritis [Recovered/Resolved]
  - Spinal stenosis [Recovered/Resolved]
  - Sleep apnoea syndrome [Unknown]
  - Intervertebral disc protrusion [Unknown]
  - Rheumatoid arthritis [Recovered/Resolved]
  - Sleep apnoea syndrome [Recovered/Resolved]
  - Nasopharyngitis [Unknown]
  - Transaminases increased [Unknown]
  - Jaw cyst [Unknown]

NARRATIVE: CASE EVENT DATE: 20180201
